FAERS Safety Report 9220782 (Version 3)
Quarter: 2013Q2

REPORT INFORMATION
  Report Type: Spontaneous
  Country: FR (occurrence: FR)
  Receive Date: 20130409
  Receipt Date: 20130517
  Transmission Date: 20140414
  Serious: Yes (Death, Hospitalization, Other)
  Sender: FDA-Public Use
  Company Number: FR-ASTRAZENECA-2012SE89175

PATIENT
  Age: 18333 Day
  Sex: Male

DRUGS (19)
  1. INEXIUM [Suspect]
     Route: 048
  2. DAFALGAN [Suspect]
     Route: 048
  3. LEVACT [Suspect]
     Indication: PLASMA CELL MYELOMA
     Route: 042
     Dates: start: 20120425
  4. HALDOL [Suspect]
     Route: 048
  5. BACTRIM FORTE [Suspect]
     Route: 048
  6. BACLOFEN [Suspect]
     Route: 048
  7. COLTRAMYL [Suspect]
     Route: 048
  8. LASILIX FAIBLE [Suspect]
     Route: 048
  9. LYRICA [Suspect]
     Route: 048
  10. OXYCONTIN [Suspect]
     Route: 048
  11. TOPALGIC [Suspect]
     Route: 048
  12. ZOPICLONE [Suspect]
     Route: 048
  13. LAROXYL ROCHE [Suspect]
     Dosage: 40 MG/ML
     Route: 048
  14. TEMESTA [Suspect]
     Route: 048
  15. TAZOCILLINE [Concomitant]
     Indication: SEPSIS
  16. VANCOMYCINE [Concomitant]
     Indication: SEPSIS
  17. GENTAMICINE [Concomitant]
  18. PIPERACILLINE [Concomitant]
  19. CIFLOX [Concomitant]

REACTIONS (6)
  - Pseudomonal sepsis [Unknown]
  - Pyelonephritis [Unknown]
  - Femoral neck fracture [Unknown]
  - Staphylococcal bacteraemia [Unknown]
  - Condition aggravated [Fatal]
  - Jaundice cholestatic [Not Recovered/Not Resolved]
